FAERS Safety Report 5140972-3 (Version None)
Quarter: 2006Q4

REPORT INFORMATION
  Report Type: 
  Country: None (occurrence: None)
  Receive Date: 20061027
  Receipt Date: 20061027
  Transmission Date: 20070319
  Serious: Yes (Other)
  Sender: FDA-Public Use
  Company Number: None

PATIENT
  Age: 52 Year
  Sex: Male
  Weight: 79.3795 kg

DRUGS (2)
  1. EFFEXOR [Suspect]
     Indication: INTERVERTEBRAL DISC PROTRUSION
     Dosage: DAILY PO
     Route: 048
     Dates: start: 20011101, end: 20020701
  2. EFFEXOR [Suspect]
     Indication: PAIN
     Dosage: DAILY PO
     Route: 048
     Dates: start: 20011101, end: 20020701

REACTIONS (2)
  - AMNESIA [None]
  - SOMNOLENCE [None]
